FAERS Safety Report 5214867-0 (Version None)
Quarter: 2006Q4

REPORT INFORMATION
  Report Type: 
  Country: None (occurrence: None)
  Receive Date: 20061107
  Receipt Date: 20060612
  Transmission Date: 20070319
  Serious: No
  Sender: FDA-Public Use
  Company Number: 200614080BWH

PATIENT
  Age: 69 Year
  Sex: Male

DRUGS (11)
  1. LEVITRA [Suspect]
     Indication: ERECTILE DYSFUNCTION
     Dosage: SEE IMAGE, ORAL
     Route: 048
     Dates: start: 20051201
  2. LEVITRA [Suspect]
     Indication: ERECTILE DYSFUNCTION
     Dosage: SEE IMAGE, ORAL
     Route: 048
     Dates: start: 20060501
  3. INSULIN [Concomitant]
  4. ASPIRIN [Concomitant]
  5. PLAVIX [Concomitant]
  6. NORVASC [Concomitant]
  7. DIOVAN [HYDROCHLOROTHIAZIDE, VALSARTAN] [Concomitant]
  8. TOPROL-XL [Concomitant]
  9. WARFARIN SODIUM [Concomitant]
  10. PRAVACHOL [Concomitant]
  11. PROZAC [Concomitant]

REACTIONS (1)
  - ERECTILE DYSFUNCTION [None]
